FAERS Safety Report 21473698 (Version 1)
Quarter: 2022Q4

REPORT INFORMATION
  Report Type: Report from Study
  Country: US (occurrence: US)
  Receive Date: 20221018
  Receipt Date: 20221018
  Transmission Date: 20230113
  Serious: Yes (Hospitalization, Other)
  Sender: FDA-Public Use
  Company Number: US-BoehringerIngelheim-2022-BI-167772

PATIENT
  Age: 93 Year
  Sex: Female

DRUGS (4)
  1. OFEV [Suspect]
     Active Substance: NINTEDANIB
     Indication: Interstitial lung disease
     Route: 048
     Dates: start: 20220309, end: 20220809
  2. OFEV [Suspect]
     Active Substance: NINTEDANIB
     Indication: Idiopathic pulmonary fibrosis
     Route: 048
     Dates: start: 20220814, end: 20220907
  3. GLUCERNA [Concomitant]
     Active Substance: AMINO ACIDS\DEXTROSE\ELECTROLYTES NOS\SOYBEAN OIL\VITAMINS
     Indication: Product used for unknown indication
  4. CLARITIN [Concomitant]
     Active Substance: LORATADINE
     Indication: Product used for unknown indication

REACTIONS (15)
  - Carotid artery occlusion [Not Recovered/Not Resolved]
  - Coronary artery occlusion [Recovered/Resolved]
  - Dyspnoea [Unknown]
  - Rhinorrhoea [Not Recovered/Not Resolved]
  - Ageusia [Not Recovered/Not Resolved]
  - Abdominal pain upper [Recovered/Resolved]
  - Nausea [Recovered/Resolved]
  - Diarrhoea [Recovered/Resolved]
  - Illness [Recovered/Resolved]
  - Swelling face [Not Recovered/Not Resolved]
  - Drainage [Not Recovered/Not Resolved]
  - Hypertension [Not Recovered/Not Resolved]
  - Cough [Unknown]
  - Peripheral swelling [Not Recovered/Not Resolved]
  - Seasonal allergy [Not Recovered/Not Resolved]

NARRATIVE: CASE EVENT DATE: 20220426
